FAERS Safety Report 24052988 (Version 2)
Quarter: 2024Q3

REPORT INFORMATION
  Report Type: Spontaneous
  Country: US (occurrence: US)
  Receive Date: 20240705
  Receipt Date: 20240903
  Transmission Date: 20241017
  Serious: No
  Sender: ROCHE
  Company Number: US-ROCHE-10000011911

PATIENT
  Sex: Female

DRUGS (1)
  1. ACTEMRA [Suspect]
     Active Substance: TOCILIZUMAB
     Indication: Giant cell arteritis
     Route: 058
     Dates: start: 202303

REACTIONS (6)
  - Hyperkalaemia [Unknown]
  - Hyponatraemia [Unknown]
  - Nephropathy [Unknown]
  - Cystitis [Unknown]
  - Product quality issue [Unknown]
  - Exposure via skin contact [Unknown]
